FAERS Safety Report 6291041-0 (Version None)
Quarter: 2009Q3

REPORT INFORMATION
  Report Type: 
  Country: None (occurrence: None)
  Receive Date: 20090730
  Receipt Date: 20090716
  Transmission Date: 20100115
  Serious: Yes (Other)
  Sender: FDA-Public Use
  Company Number: US-JNJFOC-20090709168

PATIENT
  Sex: Female
  Weight: 90.72 kg

DRUGS (2)
  1. TYLENOL W/ CODEINE NO. 3 [Suspect]
     Indication: ARTHRALGIA
     Route: 048
  2. TYLENOL W/ CODEINE NO. 4 [Suspect]
     Indication: ARTHRALGIA
     Route: 048

REACTIONS (2)
  - DIABETES MELLITUS [None]
  - HEPATIC STEATOSIS [None]
